FAERS Safety Report 11323770 (Version 2)
Quarter: 2015Q3

REPORT INFORMATION
  Report Type: Spontaneous
  Country: US (occurrence: US)
  Receive Date: 20150730
  Receipt Date: 20150805
  Transmission Date: 20151125
  Serious: Yes (Death, Hospitalization, Other)
  Sender: FDA-Public Use
  Company Number: US-MERCK-1507USA013301

PATIENT
  Sex: Female
  Weight: 74.5 kg

DRUGS (3)
  1. JANUVIA [Suspect]
     Active Substance: SITAGLIPTIN PHOSPHATE
     Indication: TYPE 2 DIABETES MELLITUS
     Dosage: 100 MG, QD
     Route: 048
     Dates: start: 20090819, end: 20120709
  2. JANUMET [Suspect]
     Active Substance: METFORMIN HYDROCHLORIDE\SITAGLIPTIN PHOSPHATE
     Indication: TYPE 2 DIABETES MELLITUS
     Dosage: 50-500 MG, BID
     Route: 048
     Dates: start: 20080613, end: 20090617
  3. BYETTA [Suspect]
     Active Substance: EXENATIDE
     Indication: TYPE 2 DIABETES MELLITUS
     Dosage: 5-10 MCG Q MONTH
     Route: 048
     Dates: start: 20100319, end: 20100523

REACTIONS (29)
  - Breast cancer stage I [Unknown]
  - Metastases to lung [Unknown]
  - Metastases to bone [Unknown]
  - Bile duct stent insertion [Unknown]
  - Urinary tract infection [Unknown]
  - Hypercholesterolaemia [Unknown]
  - Hydroureter [Unknown]
  - Diverticulitis [Unknown]
  - Calculus ureteric [Unknown]
  - Metastases to liver [Unknown]
  - Lymphadenopathy [Unknown]
  - Hydronephrosis [Unknown]
  - Pleural effusion [Unknown]
  - Hysterectomy [Unknown]
  - Nephrolithiasis [Unknown]
  - Knee arthroplasty [Unknown]
  - Breast conserving surgery [Unknown]
  - Retroperitoneal lymphadenopathy [Unknown]
  - Anaemia [Unknown]
  - Renal cyst [Unknown]
  - Aortic arteriosclerosis [Unknown]
  - Cough [Unknown]
  - Pancreatic carcinoma metastatic [Fatal]
  - Cerebrovascular accident [Unknown]
  - Radiotherapy to breast [Unknown]
  - Oedema peripheral [Unknown]
  - Hypothyroidism [Unknown]
  - Gastrooesophageal reflux disease [Unknown]
  - Osteopenia [Unknown]

NARRATIVE: CASE EVENT DATE: 201110
